FAERS Safety Report 9914261 (Version 2)
Quarter: 2014Q2

REPORT INFORMATION
  Report Type: Report from Study
  Country: US (occurrence: US)
  Receive Date: 20140220
  Receipt Date: 20140403
  Transmission Date: 20141212
  Serious: Yes (Death)
  Sender: FDA-Public Use
  Company Number: US-TEVA-462978USA

PATIENT
  Sex: Male

DRUGS (2)
  1. PROAIR HFA [Suspect]
     Dosage: 8 MICROGRAM DAILY;
     Route: 055
     Dates: start: 20120306
  2. QVAR [Suspect]
     Dosage: 4 MICROGRAM DAILY;
     Route: 055
     Dates: start: 20120306

REACTIONS (1)
  - Myocardial infarction [Fatal]
